FAERS Safety Report 15041325 (Version 1)
Quarter: 2018Q2

REPORT INFORMATION
  Report Type: Spontaneous
  Country: PL (occurrence: PL)
  Receive Date: 20180621
  Receipt Date: 20180621
  Transmission Date: 20180711
  Serious: Yes (Death, Other)
  Sender: FDA-Public Use
  Company Number: PL-TEVA-2018-PL-910331

PATIENT
  Age: 70 Year
  Sex: Male

DRUGS (5)
  1. MEROPENEM. [Suspect]
     Active Substance: MEROPENEM
     Indication: ANTIBIOTIC THERAPY
     Route: 065
  2. EPTIFIBATIDE. [Concomitant]
     Active Substance: EPTIFIBATIDE
  3. ACETYLSALICYLIC ACID [Suspect]
     Active Substance: ASPIRIN
     Indication: ANTIPLATELET THERAPY
     Dosage: 75 MILLIGRAM DAILY;
     Route: 065
  4. TICAGRELOR. [Concomitant]
     Active Substance: TICAGRELOR
  5. LEVOFLOXACIN TABLETS, 250 MG, 500 MG AND 750 MG [Suspect]
     Active Substance: LEVOFLOXACIN
     Indication: ANTIBIOTIC THERAPY
     Route: 065

REACTIONS (4)
  - Pneumonia [Unknown]
  - Thrombosis [Fatal]
  - Respiratory failure [Fatal]
  - Cardiac arrest [Fatal]
